FAERS Safety Report 7668541-1 (Version None)
Quarter: 2011Q3

REPORT INFORMATION
  Report Type: 
  Country: None (occurrence: None)
  Receive Date: 20110803
  Receipt Date: 20110728
  Transmission Date: 20111222
  Serious: Yes (Death, Life-Threatening, Hospitalization)
  Sender: FDA-Public Use
  Company Number: 2011HGS-002402

PATIENT
  Age: 64 Year
  Sex: Female
  Weight: 120 kg

DRUGS (23)
  1. ALPRAZOLAM [Concomitant]
  2. DIFLUCAN (FLUCONAZOLE) (FLUCONAZOLE) [Concomitant]
  3. LEBATOLOL (LABETALOL HYDROCHLORIDE) (LABETALOL HYDROCHLORIDE) [Concomitant]
  4. PREDNISONE [Concomitant]
  5. CIMETIDINE (CIMETIDINE) (CIMETIDINE) [Concomitant]
  6. LOSARTAN (LOSARTAN) (LOSARTAN) [Concomitant]
  7. COUMADIN [Concomitant]
  8. BUMEX (BUMETANIDE) (BUMETANIDE) [Concomitant]
  9. CALCIUM (CALCIUM) (CALCIUM) [Concomitant]
  10. CLINDAMYCIN [Concomitant]
  11. HYDROXYZINE [Concomitant]
  12. ALBUTEROL (SALBUTAMOL) (SALBUTAMOL) [Concomitant]
  13. CLONIDINE [Concomitant]
  14. FLONASE (FLUTICASONE PROPIONATE) (FLUTICASONE PROPIONATE) [Concomitant]
  15. POTASSIUM (POTASSIUM) (POTASSIUM) [Concomitant]
  16. COLCHICINE (COLCHICINE) (COLCHICINE) [Concomitant]
  17. BENLYSTA [Suspect]
     Indication: SYSTEMIC LUPUS ERYTHEMATOSUS
     Dosage: 5 MG/KG, 1 IN 14 D, INTRAVENOUS DRIP
     Route: 041
     Dates: start: 20110705, end: 20110705
  18. BENLYSTA [Suspect]
     Indication: SYSTEMIC LUPUS ERYTHEMATOSUS
     Dosage: 5 MG/KG, 1 IN 14 D, INTRAVENOUS DRIP
     Route: 041
     Dates: start: 20110719, end: 20110719
  19. TYLENOL (PARACETAMOL) (PARACETAMOL) [Concomitant]
  20. NEXIUM [Concomitant]
  21. PYRIDIUM (PHENAZOPYRIDINE HYDROCHLORIDE) (PHENAZOPYRIDINE HYDROCHLORID [Concomitant]
  22. MULTIVITAMIN (MULTIVITAMIN AND MINERAL SUPPLEMENT) (VITAMINS NOS, MINE [Concomitant]
  23. GLYBURIDE [Concomitant]

REACTIONS (11)
  - CARDIAC ARREST [None]
  - ANGIOEDEMA [None]
  - LOCAL SWELLING [None]
  - DYSPNOEA [None]
  - NAUSEA [None]
  - CHILLS [None]
  - ENDOTRACHEAL INTUBATION COMPLICATION [None]
  - HYPOXIA [None]
  - RETCHING [None]
  - PALLOR [None]
  - EJECTION FRACTION DECREASED [None]
